FAERS Safety Report 7130877-0 (Version None)
Quarter: 2010Q4

REPORT INFORMATION
  Report Type: 
  Country: None (occurrence: None)
  Receive Date: 20101201
  Receipt Date: 20101122
  Transmission Date: 20110411
  Serious: Yes (Hospitalization)
  Sender: FDA-Public Use
  Company Number: JP-ROCHE-744858

PATIENT
  Sex: Female

DRUGS (2)
  1. XELODA [Suspect]
     Indication: RECTAL CANCER
     Dosage: ACTION TAKEN: DISCONTINUED.
     Route: 048
     Dates: start: 20100111, end: 20100301
  2. ELPLAT [Concomitant]
     Route: 042

REACTIONS (2)
  - DEHYDRATION [None]
  - RENAL FAILURE [None]
